FAERS Safety Report 4840653-7 (Version None)
Quarter: 2005Q4

REPORT INFORMATION
  Report Type: 
  Country: None (occurrence: None)
  Receive Date: 20051130
  Receipt Date: 20051111
  Transmission Date: 20060501
  Serious: Yes (Hospitalization)
  Sender: FDA-Public Use
  Company Number: DE-AMGEN-UK157588

PATIENT
  Sex: Female

DRUGS (5)
  1. NEULASTA [Suspect]
     Indication: CHEMOTHERAPY
     Route: 065
  2. CIPROFLOXACIN [Suspect]
     Route: 065
     Dates: start: 20031130
  3. DOXORUBICIN HYDROCHLORIDE [Suspect]
     Route: 065
  4. CYCLOPHOSPHAMIDE [Suspect]
     Route: 065
  5. DOCETAXEL [Suspect]
     Route: 065

REACTIONS (3)
  - ABDOMINAL PAIN [None]
  - CONDITION AGGRAVATED [None]
  - CROHN'S DISEASE [None]
